FAERS Safety Report 6405866-1 (Version None)
Quarter: 2009Q4

REPORT INFORMATION
  Report Type: 
  Country: None (occurrence: None)
  Receive Date: 20091019
  Receipt Date: 20091012
  Transmission Date: 20100525
  Serious: Yes (Hospitalization, Other)
  Sender: FDA-Public Use
  Company Number: DE-BRISTOL-MYERS SQUIBB COMPANY-14740187

PATIENT
  Age: 73 Year
  Sex: Male

DRUGS (5)
  1. ERBITUX [Suspect]
     Indication: HYPOPHARYNGEAL CANCER
     Route: 042
     Dates: start: 20090501, end: 20090708
  2. RADIATION THERAPY [Concomitant]
     Indication: HYPOPHARYNGEAL CANCER
     Dosage: 1DF=60GY PLANNED TOTAL DOSE: 72GY PERCUTANEOUS REC INF: 08JUL09 COMPL 4 CYCLES D/C ON 15JUL09
     Dates: start: 20090615
  3. PIPERACILLIN [Concomitant]
     Dates: start: 20090101
  4. COMBACTAM [Concomitant]
     Dates: start: 20090101
  5. ACYCLOVIR [Concomitant]
     Indication: HERPES ZOSTER
     Dates: start: 20090801

REACTIONS (1)
  - THROMBOCYTOPENIA [None]
